FAERS Safety Report 9165029 (Version 1)
Quarter: 2013Q1

REPORT INFORMATION
  Report Type: Spontaneous
  Country: DE (occurrence: DE)
  Receive Date: 20130315
  Receipt Date: 20130315
  Transmission Date: 20140127
  Serious: Yes (Life-Threatening)
  Sender: FDA-Public Use
  Company Number: DE-TEVA-390322GER

PATIENT
  Age: 76 Year
  Sex: Female
  Weight: 60 kg

DRUGS (3)
  1. METHOTREXAT [Suspect]
     Indication: RHEUMATOID ARTHRITIS
     Route: 048
     Dates: end: 201210
  2. ENOXAPARIN [Suspect]
     Indication: THROMBOSIS PROPHYLAXIS
     Dosage: 70 MILLIGRAM DAILY;
     Route: 058
     Dates: start: 201209, end: 201210
  3. METAMIZOLE SODIUM [Suspect]
     Indication: ANALGESIC THERAPY
     Dosage: 90 GTT DAILY;
     Route: 048
     Dates: start: 201209, end: 201210

REACTIONS (3)
  - Agranulocytosis [Recovering/Resolving]
  - Thrombocytopenia [Recovering/Resolving]
  - Heparin-induced thrombocytopenia [Unknown]
